FAERS Safety Report 16274409 (Version 1)
Quarter: 2019Q2

REPORT INFORMATION
  Report Type: Spontaneous
  Country: DE (occurrence: DE)
  Receive Date: 20190504
  Receipt Date: 20190504
  Transmission Date: 20190711
  Serious: Yes (Other)
  Sender: FDA-Public Use
  Company Number: DE-AUROBINDO-AUR-APL-2019-024197

PATIENT

DRUGS (5)
  1. OLMESARTAN [Suspect]
     Active Substance: OLMESARTAN
     Indication: HYPERTENSION
     Dosage: UNK
     Route: 065
     Dates: start: 2013
  2. ACETYLSALICYLIC ACID [Suspect]
     Active Substance: ASPIRIN
     Indication: PRODUCT USED FOR UNKNOWN INDICATION
     Dosage: UNK UNK, UNK
     Route: 065
  3. HYDROCHLOROTHIAZIDE. [Suspect]
     Active Substance: HYDROCHLOROTHIAZIDE
     Indication: HYPERTENSION
     Dosage: UNK UNK, UNK
     Route: 065
     Dates: start: 2013
  4. AMLODIPINE [Suspect]
     Active Substance: AMLODIPINE BESYLATE
     Indication: HYPERTENSION
     Dosage: UNK UNK, UNK
     Route: 065
     Dates: start: 2013
  5. METOPROLOL. [Suspect]
     Active Substance: METOPROLOL
     Indication: HYPERTENSION
     Dosage: UNK UNK, UNK
     Route: 065

REACTIONS (9)
  - Enteritis [Unknown]
  - Diverticulum intestinal [Unknown]
  - Hypoalbuminaemia [Unknown]
  - Sprue-like enteropathy [Recovering/Resolving]
  - Chronic kidney disease [Unknown]
  - Lymphocytic infiltration [Unknown]
  - Red blood cell sedimentation rate increased [Unknown]
  - Hypokalaemia [Unknown]
  - Pallor [Unknown]
